FAERS Safety Report 6135377-2 (Version None)
Quarter: 2009Q1

REPORT INFORMATION
  Report Type: 
  Country: None (occurrence: None)
  Receive Date: 20090327
  Receipt Date: 20090316
  Transmission Date: 20090719
  Serious: Yes (Hospitalization)
  Sender: FDA-Public Use
  Company Number: HK-PFIZER INC-2009184817

PATIENT

DRUGS (13)
  1. MARAVIROC [Suspect]
     Dosage: 150 MG, 2X/DAY
     Route: 048
     Dates: start: 20080312
  2. RALTEGRAVIR [Suspect]
     Dosage: 400 MG, 2X/DAY
     Route: 048
     Dates: start: 20080312
  3. DICLOFENAC SODIUM [Concomitant]
     Dosage: UNK
     Route: 048
     Dates: start: 20080731
  4. ATAZANAVIR [Concomitant]
     Dosage: UNK
     Route: 048
     Dates: start: 20070404
  5. AMITRIPTYLINE [Concomitant]
     Dosage: UNK
     Route: 048
     Dates: start: 20080129
  6. VITAMIN K [Concomitant]
     Dosage: UNK
     Route: 048
     Dates: start: 20080304
  7. DOTHIEPIN [Concomitant]
     Dosage: UNK
     Route: 048
     Dates: start: 20060412
  8. ITRACONAZOLE [Concomitant]
     Dosage: UNK
     Route: 048
     Dates: start: 20020904
  9. LAMIVUDINE [Concomitant]
     Dosage: UNK
     Route: 048
     Dates: start: 19991208
  10. MULTI-VITAMINS [Concomitant]
     Dosage: UNK
     Route: 048
     Dates: start: 19991208
  11. NAPROSYN [Concomitant]
     Dosage: UNK
     Route: 048
     Dates: start: 20071025
  12. FOLIC ACID [Concomitant]
     Dosage: UNK
     Route: 048
     Dates: start: 19991208
  13. FAMOTIDINE [Concomitant]
     Dosage: UNK
     Route: 048
     Dates: start: 20080731

REACTIONS (1)
  - CONSTIPATION [None]
